FAERS Safety Report 14917970 (Version 1)
Quarter: 2018Q2

REPORT INFORMATION
  Report Type: Spontaneous
  Country: GB (occurrence: GB)
  Receive Date: 20180521
  Receipt Date: 20180521
  Transmission Date: 20180711
  Serious: Yes (Hospitalization)
  Sender: FDA-Public Use
  Company Number: GB-TEVA-2018-GB-894074

PATIENT
  Age: 42 Year
  Sex: Male
  Weight: 70 kg

DRUGS (6)
  1. GENTAMICIN SULFATE. [Concomitant]
     Active Substance: GENTAMICIN SULFATE
     Route: 065
  2. METRONIDAZOLE. [Concomitant]
     Active Substance: METRONIDAZOLE
     Route: 065
  3. PARACETAMOL [Concomitant]
     Active Substance: ACETAMINOPHEN
     Route: 065
  4. ONDANSETRON HYDROCHLORIDE. [Concomitant]
     Active Substance: ONDANSETRON HYDROCHLORIDE
     Route: 065
  5. CLARITHROMYCIN. [Concomitant]
     Active Substance: CLARITHROMYCIN
     Route: 065
  6. DEXAMETHASONE. [Suspect]
     Active Substance: DEXAMETHASONE
     Indication: PHARYNGEAL ABSCESS
     Dosage: 19.8 MILLIGRAM DAILY; INCREASING TO 6.6MG 4 TIMES A DAY
     Route: 042
     Dates: start: 20171109, end: 20171112

REACTIONS (1)
  - Duodenal perforation [Recovered/Resolved]

NARRATIVE: CASE EVENT DATE: 20171112
